FAERS Safety Report 5997260-2 (Version None)
Quarter: 2008Q4

REPORT INFORMATION
  Report Type: 
  Country: None (occurrence: None)
  Receive Date: 20081212
  Receipt Date: 20081107
  Transmission Date: 20090506
  Serious: Yes (Other)
  Sender: FDA-Public Use
  Company Number: US-ABBOTT-08P-163-0486549-00

PATIENT
  Sex: Female
  Weight: 57.658 kg

DRUGS (9)
  1. HUMIRA [Suspect]
     Indication: RHEUMATOID ARTHRITIS
     Route: 050
     Dates: start: 20070101
  2. HYDROXYCHLOROQUINE SULFATE [Concomitant]
     Indication: SJOGREN'S SYNDROME
     Route: 048
     Dates: start: 20080225
  3. ROSUVASTATIN [Concomitant]
     Indication: BLOOD CHOLESTEROL
     Dates: start: 20070701
  4. LORAZEPAM [Concomitant]
     Indication: ANXIETY
     Route: 048
     Dates: start: 19980101
  5. ZOLPIDEM TARTRATE [Concomitant]
     Indication: INSOMNIA
  6. NITROFURANTOIN [Concomitant]
     Indication: DRUG USE FOR UNKNOWN INDICATION
  7. NAPROXEN SODIUM [Concomitant]
     Indication: DRUG USE FOR UNKNOWN INDICATION
  8. ZOLOFT [Concomitant]
     Indication: ANXIETY
     Dates: start: 20020101
  9. MODAFINIL [Concomitant]
     Indication: CENTRAL NERVOUS SYSTEM STIMULATION
     Dosage: HALF TAB
     Dates: start: 20070301

REACTIONS (1)
  - SKIN CANCER [None]
